FAERS Safety Report 11244281 (Version 1)
Quarter: 2015Q3

REPORT INFORMATION
  Report Type: Spontaneous
  Country: DK (occurrence: DK)
  Receive Date: 20150707
  Receipt Date: 20150707
  Transmission Date: 20151125
  Serious: Yes (Life-Threatening, Hospitalization)
  Sender: FDA-Public Use
  Company Number: DK-TEVA-489636ISR

PATIENT
  Age: 43 Year
  Sex: Male
  Weight: 100 kg

DRUGS (4)
  1. RISPERIDON ^TEVA^ [Suspect]
     Active Substance: RISPERIDONE
     Indication: DEPRESSION
     Dosage: 3 MILLIGRAM DAILY; EVERY EVENING
     Route: 048
     Dates: start: 20130301, end: 20140301
  2. RISPERIDON ^TEVA^ [Suspect]
     Active Substance: RISPERIDONE
     Dosage: EVERY EVENING
     Route: 048
  3. RISPERIDON ^TEVA^ [Suspect]
     Active Substance: RISPERIDONE
     Dosage: EVERY EVENING
     Route: 048
  4. NORITREN [Suspect]
     Active Substance: NORTRIPTYLINE HYDROCHLORIDE
     Indication: DEPRESSION
     Dosage: 200 MILLIGRAM DAILY;
     Route: 048
     Dates: start: 20130301, end: 20140301

REACTIONS (9)
  - Electrocardiogram QT prolonged [Unknown]
  - Ventricular fibrillation [Unknown]
  - Cardiac output decreased [Not Recovered/Not Resolved]
  - Heart injury [Not Recovered/Not Resolved]
  - Cardiac arrest [Recovered/Resolved]
  - Cardiac pacemaker insertion [Recovered/Resolved]
  - Pain [Unknown]
  - Anxiety [Unknown]
  - Cardiac massage [Unknown]

NARRATIVE: CASE EVENT DATE: 20140228
